FAERS Safety Report 8859926 (Version 1)
Quarter: 2012Q4

REPORT INFORMATION
  Report Type: 
  Country: US (occurrence: US)
  Receive Date: 20121025
  Receipt Date: 20121025
  Transmission Date: 20130627
  Serious: No
  Sender: FDA-Public Use
  Company Number: US-ELI_LILLY_AND_COMPANY-US201210005441

PATIENT
  Age: 70 Year
  Sex: Female

DRUGS (13)
  1. CYMBALTA [Suspect]
     Indication: PARAESTHESIA
     Dosage: 30 mg, qd
     Dates: end: 201208
  2. EVISTA [Concomitant]
  3. NORVASC [Concomitant]
  4. ZEBETA [Concomitant]
  5. AVAPRO [Concomitant]
  6. VITAMIN D3 [Concomitant]
  7. CALCIUM CARBONATE [Concomitant]
  8. GLUCOSAMINE [Concomitant]
  9. CHONDROITIN [Concomitant]
  10. VITAMIN B [Concomitant]
  11. COQ10 [Concomitant]
  12. CENTRUM SILVER [Concomitant]
  13. ENTERIC ASPIRIN [Concomitant]

REACTIONS (5)
  - Liver tenderness [Unknown]
  - Burning sensation [Unknown]
  - Dyspepsia [Unknown]
  - Stomatitis [Unknown]
  - Off label use [Unknown]
